FAERS Safety Report 6302425-6 (Version None)
Quarter: 2009Q3

REPORT INFORMATION
  Report Type: 
  Country: None (occurrence: None)
  Receive Date: 20090810
  Receipt Date: 20090807
  Transmission Date: 20100115
  Serious: Yes (Other)
  Sender: FDA-Public Use
  Company Number: DE-JNJFOC-20090707755

PATIENT
  Age: 44 Year
  Sex: Male

DRUGS (1)
  1. TAVANIC [Suspect]
     Indication: PROSTATITIS
     Dosage: FILM COATED TABLETS
     Route: 048

REACTIONS (11)
  - ANXIETY [None]
  - ARTHRALGIA [None]
  - BONE DISORDER [None]
  - EYE PAIN [None]
  - MUSCLE SPASMS [None]
  - MUSCULOSKELETAL DISCOMFORT [None]
  - MUSCULOSKELETAL STIFFNESS [None]
  - PAIN IN EXTREMITY [None]
  - PANIC ATTACK [None]
  - PARAESTHESIA [None]
  - TENDONITIS [None]
